FAERS Safety Report 15532836 (Version 1)
Quarter: 2018Q4

REPORT INFORMATION
  Report Type: Spontaneous
  Country: GB (occurrence: GB)
  Receive Date: 20181019
  Receipt Date: 20181019
  Transmission Date: 20190205
  Serious: Yes (Other)
  Sender: FDA-Public Use
  Company Number: PHHY2018GB128668

PATIENT
  Age: 82 Year
  Sex: Female
  Weight: 72 kg

DRUGS (10)
  1. ACCRETE D3 [Concomitant]
     Indication: PRODUCT USED FOR UNKNOWN INDICATION
     Dosage: 2 DF, QD
     Route: 065
     Dates: start: 20180129
  2. GAVISCON ADVANCE [Concomitant]
     Active Substance: POTASSIUM BICARBONATE\SODIUM ALGINATE
     Indication: PRODUCT USED FOR UNKNOWN INDICATION
     Dosage: 40 ML, QD
     Route: 065
     Dates: start: 20180521
  3. LERCANIDIPINE HYDROCHLORIDE [Concomitant]
     Active Substance: LERCANIDIPINE HYDROCHLORIDE
     Indication: PRODUCT USED FOR UNKNOWN INDICATION
     Dosage: 1 DF, QD
     Route: 065
     Dates: start: 20180129
  4. LANSOPRAZOLE. [Concomitant]
     Active Substance: LANSOPRAZOLE
     Indication: GASTROOESOPHAGEAL REFLUX DISEASE
     Dosage: 2 DF, QD
     Route: 065
     Dates: start: 20180129
  5. HYDROXOCOBALAMIN [Concomitant]
     Active Substance: HYDROXOCOBALAMIN
     Indication: PRODUCT USED FOR UNKNOWN INDICATION
     Route: 030
  6. METHOTREXATE. [Suspect]
     Active Substance: METHOTREXATE
     Indication: PRODUCT USED FOR UNKNOWN INDICATION
     Dosage: 2.5 MG, UNK
     Route: 048
     Dates: start: 20180921, end: 20180922
  7. ZAPAIN [Concomitant]
     Active Substance: ACETAMINOPHEN\CODEINE PHOSPHATE
     Indication: PAIN
     Dosage: TAKE 1 OR 2 4 TIMES/DAY
     Route: 065
  8. VISCOTEARS [Concomitant]
     Active Substance: CARBOMER
     Indication: PRODUCT USED FOR UNKNOWN INDICATION
     Dosage: 1 GTT, UNK
     Route: 065
     Dates: start: 20171128
  9. PREDNISOLONE. [Concomitant]
     Active Substance: PREDNISOLONE
     Indication: PRODUCT USED FOR UNKNOWN INDICATION
     Dosage: 8 DF, QD MORNING OR AS DIRECTED
     Route: 065
     Dates: start: 20180129
  10. BETAMETHASONE SODIUM PHOSPHATE [Concomitant]
     Active Substance: BETAMETHASONE SODIUM PHOSPHATE
     Indication: PRODUCT USED FOR UNKNOWN INDICATION
     Dosage: USE AS DIRECTED
     Route: 065
     Dates: start: 20180813, end: 20180827

REACTIONS (4)
  - Swollen tongue [Unknown]
  - Hypersensitivity [Recovered/Resolved]
  - Peripheral swelling [Unknown]
  - Throat tightness [Unknown]

NARRATIVE: CASE EVENT DATE: 20180921
